FAERS Safety Report 14214077 (Version 1)
Quarter: 2017Q4

REPORT INFORMATION
  Report Type: Spontaneous
  Country: US (occurrence: US)
  Receive Date: 20171122
  Receipt Date: 20171122
  Transmission Date: 20180321
  Serious: Yes (Other)
  Sender: FDA-Public Use
  Company Number: US-IMPAX LABORATORIES, INC-2017-IPXL-03245

PATIENT
  Age: 46 Year
  Sex: Female
  Weight: 73 kg

DRUGS (4)
  1. GLIPIZIDE XL [Concomitant]
     Active Substance: GLIPIZIDE
     Indication: DIABETES MELLITUS
     Dosage: 5 MG, UNK
     Route: 065
  2. CREON [Concomitant]
     Active Substance: PANCRELIPASE AMYLASE\PANCRELIPASE LIPASE\PANCRELIPASE PROTEASE
     Indication: PRODUCT USED FOR UNKNOWN INDICATION
     Dosage: UNK
     Route: 065
  3. DEXEDRINE SPANSULE [Suspect]
     Active Substance: DEXTROAMPHETAMINE SULFATE
     Indication: NARCOLEPSY
     Dosage: 10MG, THREE CAPSULES EVERY MORNING AND THREE CAPSULES EVERY AFTERNOON
     Route: 048
     Dates: start: 201709
  4. CITALOPRAM [Concomitant]
     Active Substance: CITALOPRAM HYDROBROMIDE
     Indication: DEPRESSION
     Dosage: 20 MG, UNK
     Route: 065

REACTIONS (5)
  - Somnolence [Not Recovered/Not Resolved]
  - Foot fracture [Recovering/Resolving]
  - Spinal cord compression [Recovering/Resolving]
  - Paranoia [Not Recovered/Not Resolved]
  - Fear [Not Recovered/Not Resolved]

NARRATIVE: CASE EVENT DATE: 201709
